FAERS Safety Report 6821236-6 (Version None)
Quarter: 2010Q3

REPORT INFORMATION
  Report Type: 
  Country: None (occurrence: None)
  Receive Date: 20100707
  Receipt Date: 20080430
  Transmission Date: 20110219
  Serious: No
  Sender: FDA-Public Use
  Company Number: US-PFIZER INC-2008038297

PATIENT
  Sex: Female
  Weight: 53.636 kg

DRUGS (3)
  1. ZOLOFT [Suspect]
     Indication: DEPRESSION
     Dates: start: 20080301, end: 20080429
  2. NORVASC [Concomitant]
     Indication: HYPERTENSION
  3. ATIVAN [Concomitant]
     Indication: PANIC ATTACK

REACTIONS (2)
  - JOINT SWELLING [None]
  - OEDEMA PERIPHERAL [None]
